FAERS Safety Report 12246165 (Version 1)
Quarter: 2016Q2

REPORT INFORMATION
  Report Type: Spontaneous
  Country: MX (occurrence: MX)
  Receive Date: 20160407
  Receipt Date: 20160407
  Transmission Date: 20160815
  Serious: Yes (Other)
  Sender: FDA-Public Use
  Company Number: MX-PFIZER INC-2016193692

PATIENT
  Age: 63 Year
  Sex: Female
  Weight: 70.5 kg

DRUGS (6)
  1. DICLOFENAC [Concomitant]
     Active Substance: DICLOFENAC
     Indication: PAIN
     Dosage: 1 DF, DAILY
     Route: 048
     Dates: start: 2015
  2. CINARIZINA [Concomitant]
     Indication: VERTIGO
     Dosage: 2 DF, 2X/DAY
     Route: 048
     Dates: start: 201603
  3. ENALAPRIL [Concomitant]
     Active Substance: ENALAPRIL
     Indication: BLOOD PRESSURE ABNORMAL
     Dosage: 20 MG, 2X/DAY
     Route: 048
     Dates: start: 2014
  4. KETOROLAC [Concomitant]
     Active Substance: KETOROLAC\KETOROLAC TROMETHAMINE
     Indication: PAIN
     Dosage: 1 DF, DAILY
     Route: 048
     Dates: start: 2015
  5. LYRICA [Suspect]
     Active Substance: PREGABALIN
     Indication: DIABETES MELLITUS
     Dosage: 75 MG, 2X/DAY
     Route: 048
     Dates: start: 20160321
  6. INSOGEN PLUS [Concomitant]
     Indication: DIABETES MELLITUS
     Dosage: 1.5 DF, DAILY
     Route: 048
     Dates: start: 2013

REACTIONS (6)
  - Pain in extremity [Not Recovered/Not Resolved]
  - Inflammation [Recovered/Resolved]
  - Skin depigmentation [Not Recovered/Not Resolved]
  - Product use issue [Not Recovered/Not Resolved]
  - Poisoning [Not Recovered/Not Resolved]
  - Somnolence [Not Recovered/Not Resolved]

NARRATIVE: CASE EVENT DATE: 201603
